FAERS Safety Report 14454535 (Version 1)
Quarter: 2018Q1

REPORT INFORMATION
  Report Type: Spontaneous
  Country: CN (occurrence: CN)
  Receive Date: 20180129
  Receipt Date: 20180129
  Transmission Date: 20180509
  Serious: Yes (Hospitalization, Other)
  Sender: FDA-Public Use
  Company Number: CN-MYLANLABS-2018M1005774

PATIENT
  Age: 71 Year
  Sex: Female

DRUGS (2)
  1. CLOPIDOGREL [Suspect]
     Active Substance: CLOPIDOGREL BISULFATE
     Indication: ANTIPLATELET THERAPY
     Dosage: 75 MG, QD
     Route: 065
  2. ASPIRIN                            /00002701/ [Suspect]
     Active Substance: ASPIRIN
     Indication: ANTIPLATELET THERAPY
     Dosage: 100 MG, QD
     Route: 065

REACTIONS (8)
  - Spinal cord compression [Recovered/Resolved]
  - Spinal epidural haematoma [Recovered/Resolved]
  - Dyspnoea [Not Recovered/Not Resolved]
  - Condition aggravated [Recovered/Resolved]
  - Quadriplegia [Not Recovered/Not Resolved]
  - Sensory loss [Recovering/Resolving]
  - Urinary retention [Unknown]
  - Hemiplegia [Not Recovered/Not Resolved]
